FAERS Safety Report 4887902-7 (Version None)
Quarter: 2006Q1

REPORT INFORMATION
  Report Type: 
  Country: None (occurrence: None)
  Receive Date: 20060119
  Receipt Date: 20060110
  Transmission Date: 20060701
  Serious: Yes (Hospitalization)
  Sender: FDA-Public Use
  Company Number: 2005US001813

PATIENT
  Age: 51 Year
  Sex: Male

DRUGS (6)
  1. MYCAMINE [Suspect]
     Dosage: 150 MG, UID/QD, PARENTERAL
     Route: 051
     Dates: start: 20051101
  2. VANCOMYCIN [Concomitant]
  3. TPN (NICOTINAMIDE, TYROSINE) [Concomitant]
  4. PERCOCET [Concomitant]
  5. ANTIVERT (MECLOZINE HYDROCHLORIDE [Concomitant]
  6. INVANZ (ERTAPENEM SODIUM) [Concomitant]

REACTIONS (1)
  - CONFUSIONAL STATE [None]
